FAERS Safety Report 10644554 (Version 1)
Quarter: 2014Q4

REPORT INFORMATION
  Report Type: Report from Study
  Country: BR (occurrence: BR)
  Receive Date: 20141210
  Receipt Date: 20141210
  Transmission Date: 20150529
  Serious: Yes (Other)
  Sender: FDA-Public Use
  Company Number: BR-ABBVIE-14K-020-1317078-00

PATIENT
  Age: 53 Year
  Sex: Female
  Weight: 70 kg

DRUGS (11)
  1. HUMIRA [Suspect]
     Active Substance: ADALIMUMAB
     Indication: RHEUMATOID ARTHRITIS
     Route: 058
     Dates: start: 201402, end: 201405
  2. METICORTEN [Concomitant]
     Active Substance: PREDNISONE
     Indication: ARTHRALGIA
     Dosage: HALF TABLET IN THE MORNING AND HALF TABLET AT NIGHT
     Route: 048
     Dates: start: 2009
  3. METHOTREXATE [Concomitant]
     Active Substance: METHOTREXATE
     Indication: RHEUMATOID ARTHRITIS
     Route: 048
     Dates: start: 1999
  4. FLUOXETINE [Concomitant]
     Active Substance: FLUOXETINE\FLUOXETINE HYDROCHLORIDE
     Indication: NEURITIS
     Route: 048
     Dates: start: 201406
  5. DONAREN [Concomitant]
     Active Substance: TRAZODONE HYDROCHLORIDE
     Indication: RHEUMATOID ARTHRITIS
     Dosage: HALF TABLET DAILY AT NIGHT
     Route: 048
     Dates: start: 201411
  6. PREGABALIN. [Concomitant]
     Active Substance: PREGABALIN
     Indication: RHEUMATOID ARTHRITIS
     Dosage: AT NIGHT
     Route: 048
     Dates: start: 201408
  7. HYDROXYCHLOROQUINE SULFATE. [Concomitant]
     Active Substance: HYDROXYCHLOROQUINE SULFATE
     Indication: RHEUMATOID ARTHRITIS
     Route: 048
     Dates: start: 2009, end: 2009
  8. FOLIC ACID. [Concomitant]
     Active Substance: FOLIC ACID
     Indication: RHEUMATOID ARTHRITIS
     Route: 048
     Dates: start: 2009
  9. ARTICOX [Concomitant]
     Indication: CHONDROPATHY
     Dosage: 1.5 G GLUCOSAMINE SULPHATE + 1.2 G SODIUM CHONDROITIN SULFATE
     Route: 048
     Dates: start: 20141124
  10. SIFROL [Concomitant]
     Active Substance: PRAMIPEXOLE
     Indication: RESTLESS LEGS SYNDROME
     Route: 048
     Dates: start: 201306
  11. CENTROCAL [Concomitant]
     Indication: BONE DISORDER
     Dosage: 1 TABLET IN THE MORNING AND 1 TABLET AT NIGHT
     Route: 048
     Dates: start: 201410

REACTIONS (10)
  - Pain in extremity [Not Recovered/Not Resolved]
  - Arthritis [Unknown]
  - Muscle abscess [Unknown]
  - Infective tenosynovitis [Unknown]
  - Drug effect incomplete [Unknown]
  - Peripheral swelling [Not Recovered/Not Resolved]
  - Unevaluable event [Not Recovered/Not Resolved]
  - Inflammation [Unknown]
  - Arthropathy [Unknown]
  - Localised infection [Not Recovered/Not Resolved]

NARRATIVE: CASE EVENT DATE: 201403
